FAERS Safety Report 9310839 (Version 2)
Quarter: 2013Q2

REPORT INFORMATION
  Report Type: Spontaneous
  Country: TR (occurrence: TR)
  Receive Date: 20130528
  Receipt Date: 20130605
  Transmission Date: 20140414
  Serious: Yes (Life-Threatening, Other)
  Sender: FDA-Public Use
  Company Number: TR-RANBAXY-2013RR-69428

PATIENT
  Age: 42 Year
  Sex: Male

DRUGS (6)
  1. PERINDOPRIL [Suspect]
     Indication: MYOCARDIAL INFARCTION
     Dosage: UNK
     Route: 065
  2. CARVEDILOL [Interacting]
     Indication: MYOCARDIAL INFARCTION
     Dosage: UNK
     Route: 065
  3. BEE VENOM ALLERGY IMMUNOTHERAPY [Interacting]
     Indication: ANAPHYLACTIC REACTION
     Dosage: 1 ML/MONTH
     Route: 065
  4. BEE VENOM ALLERGY IMMUNOTHERAPY [Interacting]
     Indication: ANAPHYLACTIC REACTION
     Dosage: 0.1 ML
     Route: 065
  5. BEE VENOM ALLERGY IMMUNOTHERAPY [Interacting]
     Indication: ANAPHYLACTIC REACTION
     Dosage: 0.6 ML
     Route: 065
  6. BEE VENOM ALLERGY IMMUNOTHERAPY [Interacting]
     Indication: ANAPHYLACTIC REACTION
     Dosage: 0.8 ML
     Route: 065

REACTIONS (2)
  - Anaphylactic reaction [Recovered/Resolved]
  - Drug interaction [Recovered/Resolved]
